FAERS Safety Report 4846887-X (Version None)
Quarter: 2005Q4

REPORT INFORMATION
  Report Type: 
  Country: None (occurrence: None)
  Receive Date: 20051202
  Receipt Date: 20051121
  Transmission Date: 20060501
  Serious: Yes (Hospitalization)
  Sender: FDA-Public Use
  Company Number: 12921

PATIENT
  Age: 38 Year
  Weight: 78 kg

DRUGS (8)
  1. CARBOPLATIN [Suspect]
     Dosage: 570 MG
     Dates: start: 20040325
  2. HOLOXAN [Suspect]
     Dosage: 3 G IV
     Route: 042
     Dates: start: 20040324, end: 20040326
  3. MESNA [Suspect]
     Dosage: 3 G IV
     Route: 042
     Dates: start: 20040324, end: 20040326
  4. MESNA [Suspect]
     Dosage: 3 G DAILY PO
     Route: 048
     Dates: start: 20040324, end: 20040326
  5. ETOPOPHOS [Suspect]
     Dosage: 200 MG IV
     Route: 042
     Dates: start: 20040324, end: 20040326
  6. ATIVAN [Suspect]
     Dosage: 2 MG DAILY PO
     Route: 048
     Dates: start: 20040325
  7. PARACETAMOL WITH CODEINE PHOSPHATE [Suspect]
     Dosage: 2 DAILY PO
     Route: 048
     Dates: start: 20040325
  8. COLOXYL WITH SENNA [Suspect]
     Dosage: 2 DAILY PO
     Route: 048
     Dates: start: 20040325

REACTIONS (1)
  - CYSTITIS HAEMORRHAGIC [None]
